FAERS Safety Report 10438564 (Version 1)
Quarter: 2014Q3

REPORT INFORMATION
  Report Type: Spontaneous
  Country: US (occurrence: US)
  Receive Date: 20140908
  Receipt Date: 20140908
  Transmission Date: 20150326
  Serious: No
  Sender: FDA-Public Use
  Company Number: US-BRISTOL-MYERS SQUIBB COMPANY-21161914

PATIENT
  Age: 56 Year
  Sex: Male
  Weight: 78 kg

DRUGS (2)
  1. ABILIFY [Suspect]
     Active Substance: ARIPIPRAZOLE
     Dosage: 1DF:1/2 TABLET
  2. LEXAPRO [Concomitant]
     Active Substance: ESCITALOPRAM OXALATE
     Dosage: 10MG QHS

REACTIONS (3)
  - Wrong technique in drug usage process [Unknown]
  - Drug ineffective [Unknown]
  - Fatigue [Recovering/Resolving]
